FAERS Safety Report 7986007-6 (Version None)
Quarter: 2011Q4

REPORT INFORMATION
  Report Type: 
  Country: None (occurrence: None)
  Receive Date: 20111216
  Receipt Date: 20111209
  Transmission Date: 20120403
  Serious: Yes (Other)
  Sender: FDA-Public Use
  Company Number: CA-CEPHALON-2011006182

PATIENT

DRUGS (1)
  1. TRISENOX [Suspect]
     Route: 041

REACTIONS (1)
  - BRADYCARDIA [None]
